FAERS Safety Report 19577140 (Version 1)
Quarter: 2021Q3

REPORT INFORMATION
  Report Type: Report from Study
  Country: FR (occurrence: FR)
  Receive Date: 20210719
  Receipt Date: 20210719
  Transmission Date: 20211014
  Serious: Yes (Disabling)
  Sender: FDA-Public Use
  Company Number: FR-TAKEDA-2021TUS041985

PATIENT
  Age: 44 Year
  Sex: Male

DRUGS (22)
  1. TEDUGLUTIDE [Suspect]
     Active Substance: TEDUGLUTIDE
     Indication: SHORT-BOWEL SYNDROME
     Dosage: 1.5 MILLIGRAM (0.025MG/KG), QD
     Route: 065
     Dates: start: 20190704, end: 20190731
  2. TEDUGLUTIDE [Suspect]
     Active Substance: TEDUGLUTIDE
     Dosage: 2 MILLIGRAM (0.032MG/KG), QD
     Route: 065
     Dates: start: 20190801, end: 20190827
  3. TEDUGLUTIDE [Suspect]
     Active Substance: TEDUGLUTIDE
     Dosage: 2 MILLIGRAM (0.032MG/KG), QD
     Route: 065
     Dates: start: 20190801, end: 20190827
  4. TEDUGLUTIDE [Suspect]
     Active Substance: TEDUGLUTIDE
     Dosage: 2 MILLIGRAM (0.032MG/KG), QD
     Route: 065
     Dates: start: 20190801, end: 20190827
  5. TEDUGLUTIDE [Suspect]
     Active Substance: TEDUGLUTIDE
     Dosage: 3 MILLIGRAM (0.032MG/KG), QD
     Route: 065
     Dates: start: 201912
  6. TEDUGLUTIDE [Suspect]
     Active Substance: TEDUGLUTIDE
     Dosage: 2.5 MILLIGRAM (0.032MG/KG), QD
     Route: 065
     Dates: start: 20190815, end: 201912
  7. TEDUGLUTIDE [Suspect]
     Active Substance: TEDUGLUTIDE
     Dosage: 3 MILLIGRAM (0.032MG/KG), QD
     Route: 065
     Dates: start: 201912
  8. TEDUGLUTIDE [Suspect]
     Active Substance: TEDUGLUTIDE
     Indication: SHORT-BOWEL SYNDROME
     Dosage: 1.5 MILLIGRAM (0.025MG/KG), QD
     Route: 065
     Dates: start: 20190704, end: 20190731
  9. TEDUGLUTIDE [Suspect]
     Active Substance: TEDUGLUTIDE
     Dosage: 3 MILLIGRAM (0.032MG/KG), QD
     Route: 065
     Dates: start: 201912
  10. TEDUGLUTIDE [Suspect]
     Active Substance: TEDUGLUTIDE
     Dosage: 2.5 MILLIGRAM (0.032MG/KG), QD
     Route: 065
     Dates: start: 20190815, end: 201912
  11. TEDUGLUTIDE [Suspect]
     Active Substance: TEDUGLUTIDE
     Dosage: 3 MILLIGRAM (0.032MG/KG), QD
     Route: 065
     Dates: start: 201912
  12. FERINJECT [Concomitant]
     Active Substance: FERRIC CARBOXYMALTOSE
     Indication: ANAEMIA
     Dosage: 1 GRAM, PRN
     Route: 042
     Dates: start: 20200115
  13. TEDUGLUTIDE [Suspect]
     Active Substance: TEDUGLUTIDE
     Dosage: 2.5 MILLIGRAM (0.032MG/KG), QD
     Route: 065
     Dates: start: 20190815, end: 201912
  14. RUBOZINC [Concomitant]
     Active Substance: ZINC GLUCONATE
     Indication: PROPHYLAXIS
  15. TEDUGLUTIDE [Suspect]
     Active Substance: TEDUGLUTIDE
     Indication: SHORT-BOWEL SYNDROME
     Dosage: 1.5 MILLIGRAM (0.025MG/KG), QD
     Route: 065
     Dates: start: 20190704, end: 20190731
  16. TEDUGLUTIDE [Suspect]
     Active Substance: TEDUGLUTIDE
     Dosage: 2 MILLIGRAM (0.032MG/KG), QD
     Route: 065
     Dates: start: 20190801, end: 20190827
  17. TOCO [Concomitant]
     Active Substance: .ALPHA.-TOCOPHEROL ACETATE, D-
     Indication: VITAMIN E DEFICIENCY
     Dosage: 500 MILLIGRAM, BID
     Route: 048
     Dates: start: 200404
  18. TOCO [Concomitant]
     Active Substance: .ALPHA.-TOCOPHEROL ACETATE, D-
     Indication: PROPHYLAXIS
  19. RUBOZINC [Concomitant]
     Active Substance: ZINC GLUCONATE
     Indication: ZINC DEFICIENCY
     Dosage: 15 MILLIGRAM, BID
     Route: 048
     Dates: start: 200408
  20. TEDUGLUTIDE [Suspect]
     Active Substance: TEDUGLUTIDE
     Indication: SHORT-BOWEL SYNDROME
     Dosage: 1.5 MILLIGRAM (0.025MG/KG), QD
     Route: 065
     Dates: start: 20190704, end: 20190731
  21. TEDUGLUTIDE [Suspect]
     Active Substance: TEDUGLUTIDE
     Dosage: 2.5 MILLIGRAM (0.032MG/KG), QD
     Route: 065
     Dates: start: 20190815, end: 201912
  22. TIXTAR [Concomitant]
     Active Substance: RIFAXIMIN
     Indication: PROPHYLAXIS
     Dosage: 550 MILLIGRAM, BID
     Route: 048
     Dates: start: 20170227

REACTIONS (2)
  - Asthenia [Recovered/Resolved]
  - Anaemia [Recovered/Resolved]

NARRATIVE: CASE EVENT DATE: 20191214
